FAERS Safety Report 7340146-1 (Version None)
Quarter: 2011Q1

REPORT INFORMATION
  Report Type: 
  Country: None (occurrence: None)
  Receive Date: 20110228
  Receipt Date: 20110214
  Transmission Date: 20110831
  Serious: Yes (Death)
  Sender: FDA-Public Use
  Company Number: B0701127A

PATIENT
  Age: 74 Year
  Sex: Female

DRUGS (2)
  1. MELPHALAN HYDROCHLORIDE [Suspect]
     Indication: METASTATIC MALIGNANT MELANOMA
  2. TUMOR NECROSIS FACTOR (TUMORE NECROSIS FACTOR) (FORMULATION UNKNOWN) [Suspect]

REACTIONS (3)
  - FEMORAL ARTERY EMBOLISM [None]
  - RENAL FAILURE ACUTE [None]
  - PERIPHERAL ISCHAEMIA [None]
